FAERS Safety Report 12201721 (Version 2)
Quarter: 2017Q1

REPORT INFORMATION
  Report Type: Spontaneous
  Country: US (occurrence: US)
  Receive Date: 20160322
  Receipt Date: 20170320
  Transmission Date: 20170428
  Serious: No
  Sender: FDA-Public Use
  Company Number: US-SA-2016SA009199

PATIENT
  Age: 79 Year
  Sex: Male

DRUGS (2)
  1. OXYMETAZOLINE HYDROCHLORIDE. [Concomitant]
     Active Substance: OXYMETAZOLINE HYDROCHLORIDE
     Route: 065
  2. NASACORT ALLERGY 24HR [Suspect]
     Active Substance: TRIAMCINOLONE ACETONIDE
     Indication: MULTIPLE ALLERGIES
     Route: 065
     Dates: start: 20160105

REACTIONS (3)
  - Therapeutic response decreased [Unknown]
  - Rhinitis [Unknown]
  - Nasal congestion [Unknown]
